FAERS Safety Report 5787204-0 (Version None)
Quarter: 2008Q2

REPORT INFORMATION
  Report Type: 
  Country: None (occurrence: None)
  Receive Date: 20080625
  Receipt Date: 20070919
  Transmission Date: 20081010
  Serious: No
  Sender: FDA-Public Use
  Company Number: US-ASTRAZENECA-2007UW22058

PATIENT
  Age: 3 Year
  Sex: Male

DRUGS (3)
  1. PULMICORT RESPULES [Suspect]
     Indication: ASTHMA
     Route: 055
  2. PULMICORT RESPULES [Suspect]
     Indication: FOOD ALLERGY
     Route: 055
  3. ALBUTEROL [Concomitant]

REACTIONS (4)
  - ABNORMAL BEHAVIOUR [None]
  - COUGH [None]
  - IRRITABILITY [None]
  - RESPIRATORY RATE INCREASED [None]
